FAERS Safety Report 16093424 (Version 1)
Quarter: 2019Q1

REPORT INFORMATION
  Report Type: Spontaneous
  Country: DK (occurrence: DK)
  Receive Date: 20190320
  Receipt Date: 20190320
  Transmission Date: 20190418
  Serious: Yes (Other)
  Sender: FDA-Public Use
  Company Number: DK-AUROBINDO-AUR-APL-2019-014239

PATIENT

DRUGS (3)
  1. ALENDRONIC ACID 70 MG TABLETS [Suspect]
     Active Substance: ALENDRONIC ACID
     Indication: OSTEOPOROSIS
     Dosage: 70 MILLIGRAM, EVERY WEEK
     Route: 048
     Dates: start: 20090626, end: 20180213
  2. VITAMIN D [Concomitant]
     Active Substance: CHOLECALCIFEROL
     Indication: OSTEOPOROSIS
     Dosage: UNK
     Route: 065
     Dates: start: 20090626
  3. CALCIUM AND VIT D [Concomitant]
     Active Substance: CALCIUM\VITAMIN D
     Indication: OSTEOPOROSIS
     Dosage: UNK
     Route: 065
     Dates: start: 20090626

REACTIONS (8)
  - Mastication disorder [Not Recovered/Not Resolved]
  - Dental paraesthesia [Recovered/Resolved]
  - Osteonecrosis of jaw [Not Recovered/Not Resolved]
  - Oral cavity fistula [Recovered/Resolved]
  - Gingival recession [Recovered/Resolved]
  - Tooth loss [Recovered/Resolved with Sequelae]
  - Impaired healing [Recovered/Resolved]
  - Jaw operation [Recovered/Resolved]

NARRATIVE: CASE EVENT DATE: 2017
